FAERS Safety Report 4801653-6 (Version None)
Quarter: 2005Q3

REPORT INFORMATION
  Report Type: 
  Country: None (occurrence: None)
  Receive Date: 20050929
  Receipt Date: 20050805
  Transmission Date: 20060218
  Serious: Yes (Hospitalization)
  Sender: FDA-Public Use
  Company Number: 05P-163-0306592-00

PATIENT
  Age: 84 Year
  Sex: Female
  Weight: 46.7205 kg

DRUGS (9)
  1. HUMIRA [Suspect]
     Indication: RHEUMATOID ARTHRITIS
     Dosage: 40 MG, 40 MG 1 IN 2 WK SUBCUTANEOUS
     Route: 058
     Dates: start: 20050101, end: 20050712
  2. METOPROLOL TARTRATE [Concomitant]
  3. ALENDRONATE SODIUM [Concomitant]
  4. CALCIUM GLUCONATE [Concomitant]
  5. OMEPRAZOLE [Concomitant]
  6. LEVOTHYROXINE SODIUM [Concomitant]
  7. EASPRIN [Concomitant]
  8. DYAZIDE [Concomitant]
  9. FOLIC ACID [Concomitant]

REACTIONS (2)
  - PNEUMONIA STAPHYLOCOCCAL [None]
  - WEIGHT DECREASED [None]
